FAERS Safety Report 9099845 (Version 2)
Quarter: 2013Q4

REPORT INFORMATION
  Report Type: Spontaneous
  Country: US (occurrence: US)
  Receive Date: 20130214
  Receipt Date: 20131226
  Transmission Date: 20140711
  Serious: Yes (Hospitalization, Other)
  Sender: FDA-Public Use
  Company Number: US-BAYER-2013-018710

PATIENT
  Age: 40 Year
  Sex: Female
  Weight: 88.44 kg

DRUGS (7)
  1. OCELLA [Suspect]
     Dosage: UNK
     Dates: start: 20100621, end: 201103
  2. ALEVE [Concomitant]
     Indication: ABDOMINAL PAIN
  3. OMEGA-3 [Concomitant]
  4. VITAMIN E [Concomitant]
  5. VITAMIN D [Concomitant]
  6. FISH OIL [Concomitant]
  7. FLAXSEED OIL [Concomitant]

REACTIONS (4)
  - Pulmonary embolism [None]
  - Deep vein thrombosis [None]
  - Injury [None]
  - Cerebrovascular accident [None]
